FAERS Safety Report 6631800-5 (Version None)
Quarter: 2010Q1

REPORT INFORMATION
  Report Type: 
  Country: None (occurrence: None)
  Receive Date: 20100312
  Receipt Date: 20100304
  Transmission Date: 20100710
  Serious: Yes (Hospitalization)
  Sender: FDA-Public Use
  Company Number: JP-ABBOTT-10P-087-0630513-00

PATIENT
  Sex: Female
  Weight: 45 kg

DRUGS (12)
  1. HUMIRA [Suspect]
     Indication: RHEUMATOID ARTHRITIS
     Route: 058
     Dates: start: 20090519, end: 20090714
  2. HUMIRA [Suspect]
     Dates: start: 20091029
  3. METHOTREXATE [Concomitant]
     Indication: RHEUMATOID ARTHRITIS
     Dosage: 6MG DAILY
  4. PREDNISOLONE [Concomitant]
     Indication: RHEUMATOID ARTHRITIS
     Dosage: 7.5MG DAILY
     Route: 048
  5. DICLOFENAC SODIUM [Concomitant]
     Indication: RHEUMATOID ARTHRITIS
     Dosage: 75MG DAILY
  6. MISOPROSTOL [Concomitant]
     Indication: RHEUMATOID ARTHRITIS
     Dosage: 200MG DAILY
  7. FOLIC ACID [Concomitant]
     Indication: PROPHYLAXIS
     Dosage: 5MG DAILY
  8. FOLIC ACID [Concomitant]
     Indication: ADVERSE REACTION
  9. ALFACALCIDOL [Concomitant]
     Indication: PROPHYLAXIS
     Dosage: 0.5MCG DAILY
  10. ALFACALCIDOL [Concomitant]
     Indication: ADVERSE REACTION
  11. RALOXIFENE HYDROCHLORIDE [Concomitant]
     Indication: PROPHYLAXIS
     Dosage: 60MG DAILY
  12. RALOXIFENE HYDROCHLORIDE [Concomitant]
     Indication: ADVERSE REACTION

REACTIONS (2)
  - FALL [None]
  - FEMUR FRACTURE [None]
